FAERS Safety Report 9213955 (Version 1)
Quarter: 2013Q2

REPORT INFORMATION
  Report Type: Spontaneous
  Country: FR (occurrence: FR)
  Receive Date: 20130405
  Receipt Date: 20130405
  Transmission Date: 20140414
  Serious: Yes (Hospitalization, Other)
  Sender: FDA-Public Use
  Company Number: FR-JNJFOC-20130317475

PATIENT
  Age: 75 Year
  Sex: Female

DRUGS (5)
  1. XARELTO [Suspect]
     Indication: CEREBROVASCULAR ACCIDENT PROPHYLAXIS
     Route: 048
     Dates: start: 20121016
  2. XARELTO [Suspect]
     Indication: ATRIAL FIBRILLATION
     Route: 048
     Dates: start: 20121016
  3. OXOMEMAZINE [Suspect]
     Indication: SLEEP DISORDER
     Route: 048
     Dates: start: 20121228, end: 20121230
  4. FLECAINE [Suspect]
     Indication: ATRIAL FIBRILLATION
     Route: 065
     Dates: start: 20080711
  5. MIRTAZAPINE [Suspect]
     Indication: SLEEP DISORDER
     Route: 048
     Dates: start: 20120629, end: 20130208

REACTIONS (2)
  - Malaise [Recovered/Resolved]
  - Loss of consciousness [Recovered/Resolved]
